FAERS Safety Report 18733598 (Version 1)
Quarter: 2021Q1

REPORT INFORMATION
  Report Type: Spontaneous
  Country: US (occurrence: US)
  Receive Date: 20210113
  Receipt Date: 20210113
  Transmission Date: 20210419
  Serious: Yes (Hospitalization)
  Sender: FDA-Public Use
  Company Number: US-APOTEX-2021AP000052

PATIENT
  Age: 25 Year
  Sex: Female

DRUGS (1)
  1. ACETAMINOPHEN. [Suspect]
     Active Substance: ACETAMINOPHEN
     Indication: PRODUCT USED FOR UNKNOWN INDICATION
     Dosage: UNK, QD (TOTAL 20 G WITH A TOTAL DAILY DOSE LESS THAN 4 G/DAY)
     Route: 065

REACTIONS (1)
  - Pyroglutamic acidosis [Recovered/Resolved]
